FAERS Safety Report 17445459 (Version 1)
Quarter: 2020Q1

REPORT INFORMATION
  Report Type: Spontaneous
  Country: GB (occurrence: GB)
  Receive Date: 20200221
  Receipt Date: 20200221
  Transmission Date: 20200409
  Serious: Yes (Other)
  Sender: FDA-Public Use
  Company Number: NVSC2020GB042203

PATIENT
  Age: 25 Year
  Sex: Female

DRUGS (1)
  1. ELTROMBOPAG [Suspect]
     Active Substance: ELTROMBOPAG
     Indication: IMMUNE THROMBOCYTOPENIC PURPURA
     Dosage: 25 MG
     Route: 048
     Dates: start: 20190726, end: 20191014

REACTIONS (3)
  - Aggression [Recovered/Resolved]
  - Mood altered [Recovered/Resolved]
  - Affect lability [Unknown]

NARRATIVE: CASE EVENT DATE: 20190801
